FAERS Safety Report 20698710 (Version 2)
Quarter: 2022Q2

REPORT INFORMATION
  Report Type: Spontaneous
  Country: AU (occurrence: AU)
  Receive Date: 20220412
  Receipt Date: 20220421
  Transmission Date: 20220721
  Serious: Yes (Hospitalization, Other)
  Sender: FDA-Public Use
  Company Number: AU-BRISTOL-MYERS SQUIBB COMPANY-2022-015986

PATIENT
  Age: 72 Year
  Sex: Male

DRUGS (4)
  1. REVLIMID [Suspect]
     Active Substance: LENALIDOMIDE
     Indication: Plasma cell myeloma
     Dosage: DOSE : PREVIOUS 15 MG;  PREVIOUS DAILY D1-21
     Route: 065
     Dates: start: 20220203
  2. REVLIMID [Suspect]
     Active Substance: LENALIDOMIDE
     Dosage: CURRENT 15 MG, FREQ : CURRENT DAILY D1-21,
     Route: 065
     Dates: start: 20220331
  3. REVLIMID [Suspect]
     Active Substance: LENALIDOMIDE
     Dosage: D1-21 (Q28D)
     Route: 048
     Dates: start: 20170427
  4. REVLIMID [Suspect]
     Active Substance: LENALIDOMIDE
     Route: 065
     Dates: start: 20220311

REACTIONS (1)
  - Skin disorder [Recovered/Resolved with Sequelae]

NARRATIVE: CASE EVENT DATE: 20220207
